FAERS Safety Report 9697025 (Version 1)
Quarter: 2013Q4

REPORT INFORMATION
  Report Type: Spontaneous
  Country: ES (occurrence: ES)
  Receive Date: 20131120
  Receipt Date: 20131120
  Transmission Date: 20140711
  Serious: Yes (Hospitalization)
  Sender: FDA-Public Use
  Company Number: ES-ROCHE-1303765

PATIENT
  Age: 60 Year
  Sex: Female

DRUGS (4)
  1. PEGASYS [Suspect]
     Indication: HEPATITIS C
     Route: 058
     Dates: start: 20130919
  2. INCIVO [Suspect]
     Indication: HEPATITIS C
     Route: 048
     Dates: start: 20130919
  3. REBETOL [Suspect]
     Indication: HEPATITIS C
     Route: 048
     Dates: start: 20130919
  4. LEVEMIR [Concomitant]

REACTIONS (4)
  - Anaemia [Recovered/Resolved]
  - Anal pruritus [Recovering/Resolving]
  - Proctalgia [Recovered/Resolved]
  - Cachexia [Recovering/Resolving]
